FAERS Safety Report 8437555-6 (Version None)
Quarter: 2012Q2

REPORT INFORMATION
  Report Type: 
  Country: None (occurrence: None)
  Receive Date: 20120614
  Receipt Date: 20120426
  Transmission Date: 20120825
  Serious: No
  Sender: FDA-Public Use
  Company Number: US-AMGEN-USASP2012022581

PATIENT
  Age: 64 Year
  Sex: Female

DRUGS (9)
  1. PROLIA [Suspect]
     Indication: OSTEOPENIA
     Dosage: 60 MG, Q6MO
     Dates: start: 20111116
  2. MAGNESIUM [Concomitant]
  3. LEXAPRO [Concomitant]
  4. CALCIUM [Concomitant]
  5. VITAMIN D [Concomitant]
  6. DEXILANT [Concomitant]
     Indication: GASTROOESOPHAGEAL REFLUX DISEASE
     Dosage: 60 MG, QD
  7. ALLEGRA [Concomitant]
     Dosage: UNK
     Dates: start: 20090612
  8. ZYRTEC [Concomitant]
  9. OSTELIN [Concomitant]
     Dosage: UNK
     Dates: start: 20061102

REACTIONS (2)
  - DEVICE FAILURE [None]
  - ECZEMA EYELIDS [None]
